FAERS Safety Report 5380801-6 (Version None)
Quarter: 2007Q3

REPORT INFORMATION
  Report Type: 
  Country: None (occurrence: None)
  Receive Date: 20070706
  Receipt Date: 20070703
  Transmission Date: 20080115
  Serious: Yes (Disabling)
  Sender: FDA-Public Use
  Company Number: IE-MERCK-0705GBR00020

PATIENT
  Age: 63 Year
  Sex: Female

DRUGS (2)
  1. SINGULAIR [Suspect]
     Indication: ASTHMA
     Route: 048
  2. [THERAPY UNSPECIFIED] [Concomitant]
     Indication: ASTHMA
     Route: 065

REACTIONS (1)
  - NEUROPATHY [None]
